FAERS Safety Report 4328364-8 (Version None)
Quarter: 2004Q1

REPORT INFORMATION
  Report Type: 
  Country: None (occurrence: None)
  Receive Date: 20040331
  Receipt Date: 20040322
  Transmission Date: 20041129
  Serious: Yes (Hospitalization)
  Sender: FDA-Public Use
  Company Number: PHNU2004DE01298

PATIENT
  Sex: Female

DRUGS (5)
  1. DIOVAN [Suspect]
     Indication: HYPERTENSION
     Route: 065
     Dates: start: 20020101
  2. ISOPTIN TAB [Concomitant]
  3. DIGITOXIN TAB [Concomitant]
  4. ISOSORBIDE DINITRATE [Concomitant]
  5. MOLSIDOMINE [Concomitant]
     Indication: CARDIAC FAILURE
     Dates: start: 20040201

REACTIONS (3)
  - ARTHRALGIA [None]
  - BACK PAIN [None]
  - SHOCK [None]
